FAERS Safety Report 8822143 (Version 6)
Quarter: 2013Q1

REPORT INFORMATION
  Report Type: Report from Study
  Country: DE (occurrence: DE)
  Receive Date: 20121003
  Receipt Date: 20130123
  Transmission Date: 20140127
  Serious: Yes (Hospitalization, Other)
  Sender: FDA-Public Use
  Company Number: DE-GENZYME-CAMP-1002454

PATIENT
  Age: 77 Year
  Sex: Male
  Weight: 78 kg

DRUGS (16)
  1. CAMPATH [Suspect]
     Indication: CHRONIC LYMPHOCYTIC LEUKAEMIA
     Dosage: 30 MG, QD, 3 X WEEKLY
     Route: 058
     Dates: start: 20111012, end: 20120111
  2. CAMPATH [Suspect]
     Dosage: 30 MG, QD, EVERY 14 DAYS
     Route: 058
     Dates: start: 20120112, end: 20120711
  3. DEXAMETHASONE [Suspect]
     Indication: CHRONIC LYMPHOCYTIC LEUKAEMIA
     Dosage: 40 MG, QD, DAY 1-4, EVERY 14 DAYS
     Route: 048
     Dates: start: 20111012, end: 20111201
  4. PEGFILGRASTIM [Suspect]
     Indication: NEUTROPENIA
     Dosage: 6 MG, QD, EVERY 14 DAYS
     Route: 058
     Dates: start: 20111012, end: 20120105
  5. PEGFILGRASTIM [Suspect]
     Dosage: 6 MG, UNK (INTERMITTENT)
     Route: 058
     Dates: start: 20120106
  6. ACICLOVIR [Concomitant]
     Indication: PRODUCT USED FOR UNKNOWN INDICATION
     Dosage: 250 MG, TID (3-3-3-0)
     Route: 065
  7. ACICLOVIR [Concomitant]
     Dosage: 3 DF, TID
     Route: 065
  8. PANTOPRAZOLE [Concomitant]
     Indication: PRODUCT USED FOR UNKNOWN INDICATION
     Dosage: 400 MG, QD
     Route: 065
  9. CALCIUM D SANDOZ [Concomitant]
     Indication: PRODUCT USED FOR UNKNOWN INDICATION
     Dosage: 500 MG, QD
     Route: 065
  10. COTRIMOXAZOLE [Concomitant]
     Indication: PRODUCT USED FOR UNKNOWN INDICATION
     Dosage: 960 MG, QD (1-0-0-0)
     Route: 065
  11. CALCIMAGON-D3 [Concomitant]
     Indication: PRODUCT USED FOR UNKNOWN INDICATION
     Dosage: UNK
     Route: 065
  12. CIPROFLOXACIN [Concomitant]
     Indication: PRODUCT USED FOR UNKNOWN INDICATION
     Dosage: 500 MG, BID
     Route: 065
  13. NEUPOGEN [Concomitant]
     Indication: PRODUCT USED FOR UNKNOWN INDICATION
     Dosage: UNK
     Route: 065
  14. FOLGT [Concomitant]
     Indication: PRODUCT USED FOR UNKNOWN INDICATION
     Dosage: UNK
     Route: 065
  15. COMBACTAM [Concomitant]
     Indication: PRODUCT USED FOR UNKNOWN INDICATION
     Dosage: 1 G, TID (1-1-1-0)
     Route: 065
  16. PIPERACILLIN [Concomitant]
     Indication: PRODUCT USED FOR UNKNOWN INDICATION
     Dosage: 4 G, TID (1-1-1-0)
     Route: 065

REACTIONS (6)
  - Gastroenteritis norovirus [Recovered/Resolved with Sequelae]
  - Pseudomonas infection [Recovered/Resolved]
  - Pain in jaw [Recovered/Resolved]
  - Soft tissue mass [Recovered/Resolved]
  - Infectious disease carrier [Unknown]
  - Urinary tract infection staphylococcal [Recovered/Resolved]
